FAERS Safety Report 25299731 (Version 4)
Quarter: 2025Q2

REPORT INFORMATION
  Report Type: Report from Study
  Country: CA (occurrence: CA)
  Receive Date: 20250512
  Receipt Date: 20250602
  Transmission Date: 20250717
  Serious: Yes (Other)
  Sender: CSL BEHRING
  Company Number: CA-BEH-2024187323

PATIENT
  Age: 75 Year
  Sex: Female
  Weight: 52.5 kg

DRUGS (46)
  1. HIZENTRA [Suspect]
     Active Substance: HUMAN IMMUNOGLOBULIN G
     Indication: Primary immunodeficiency syndrome
     Dosage: 10 G, QW(1 IN ERVERY 1 WEK)
     Route: 065
     Dates: start: 20240424
  2. HIZENTRA [Suspect]
     Active Substance: HUMAN IMMUNOGLOBULIN G
     Dosage: 10 G, QW( 1 IN EVERY 1 WEEK)
     Route: 065
     Dates: start: 20241125
  3. HIZENTRA [Suspect]
     Active Substance: HUMAN IMMUNOGLOBULIN G
     Dosage: 10 G, QW( 1 IN EVERY 1 WEEK)
     Route: 065
     Dates: start: 20241202
  4. HIZENTRA [Suspect]
     Active Substance: HUMAN IMMUNOGLOBULIN G
     Dosage: 10 G, QW( 1 IN EVERY 1 WEEK)
     Route: 065
     Dates: start: 20241230
  5. HIZENTRA [Suspect]
     Active Substance: HUMAN IMMUNOGLOBULIN G
     Dosage: 6 G, QW(1 IN EVERY 1 WEK)
     Route: 065
  6. HIZENTRA [Suspect]
     Active Substance: HUMAN IMMUNOGLOBULIN G
     Dosage: 10 G, QW(1 IN EVERY 1 WEEK) (STRENGTH 2-2G, 2-4G)
     Route: 058
     Dates: start: 20240424
  7. HIZENTRA [Suspect]
     Active Substance: HUMAN IMMUNOGLOBULIN G
     Dosage: 12 G, QW(1 IN EVERY 1 WEEK) (STRENGTH 2-2G, 2-4G)
     Route: 058
     Dates: start: 20240424
  8. HIZENTRA [Suspect]
     Active Substance: HUMAN IMMUNOGLOBULIN G
     Dosage: 10 G, QW(1 IN EVERY 1 WEEK)
     Route: 065
     Dates: start: 20250106
  9. HIZENTRA [Suspect]
     Active Substance: HUMAN IMMUNOGLOBULIN G
     Dosage: 10 G, QW(1 IN EVERY 1 WEEK)
     Route: 065
     Dates: start: 20250110
  10. HIZENTRA [Suspect]
     Active Substance: HUMAN IMMUNOGLOBULIN G
     Dosage: 10 G, QW(1 IN EVERY 1 WEEK)
     Route: 065
     Dates: start: 20250210
  11. HIZENTRA [Suspect]
     Active Substance: HUMAN IMMUNOGLOBULIN G
     Dosage: STRENGTH 10 G, QW
     Route: 058
     Dates: start: 20250303
  12. HIZENTRA [Suspect]
     Active Substance: HUMAN IMMUNOGLOBULIN G
     Route: 065
     Dates: start: 20250310
  13. HIZENTRA [Suspect]
     Active Substance: HUMAN IMMUNOGLOBULIN G
     Route: 058
     Dates: start: 20250324
  14. HIZENTRA [Suspect]
     Active Substance: HUMAN IMMUNOGLOBULIN G
     Route: 065
     Dates: start: 20250331
  15. HIZENTRA [Suspect]
     Active Substance: HUMAN IMMUNOGLOBULIN G
     Route: 058
     Dates: start: 20250407
  16. HIZENTRA [Suspect]
     Active Substance: HUMAN IMMUNOGLOBULIN G
     Dosage: 12 G, QW
     Route: 058
     Dates: start: 20240424
  17. HIZENTRA [Suspect]
     Active Substance: HUMAN IMMUNOGLOBULIN G
     Route: 058
     Dates: start: 20250424
  18. HIZENTRA [Suspect]
     Active Substance: HUMAN IMMUNOGLOBULIN G
     Route: 058
     Dates: start: 20240424
  19. HIZENTRA [Suspect]
     Active Substance: HUMAN IMMUNOGLOBULIN G
     Route: 065
     Dates: start: 20250505
  20. HIZENTRA [Suspect]
     Active Substance: HUMAN IMMUNOGLOBULIN G
     Dosage: 12 G, QW
     Route: 058
  21. HIZENTRA [Suspect]
     Active Substance: HUMAN IMMUNOGLOBULIN G
     Dosage: 12 G, QW
     Route: 058
     Dates: start: 20240424
  22. HIZENTRA [Suspect]
     Active Substance: HUMAN IMMUNOGLOBULIN G
     Dosage: 12 G, QW
     Route: 058
     Dates: start: 20240424
  23. HIZENTRA [Suspect]
     Active Substance: HUMAN IMMUNOGLOBULIN G
     Route: 065
     Dates: start: 20250520
  24. HIZENTRA [Suspect]
     Active Substance: HUMAN IMMUNOGLOBULIN G
     Route: 065
     Dates: start: 20250526
  25. FERROUS SULFATE [Concomitant]
     Active Substance: FERROUS SULFATE
  26. CHOLECALCIFEROL [Concomitant]
     Active Substance: CHOLECALCIFEROL
  27. VITAMIN B12 [Concomitant]
     Active Substance: CYANOCOBALAMIN
  28. MONTELUKAST [Concomitant]
     Active Substance: MONTELUKAST
  29. DITROPAN [Concomitant]
     Active Substance: OXYBUTYNIN CHLORIDE
  30. AMLODIPINE [Concomitant]
     Active Substance: AMLODIPINE BESYLATE
  31. Rivasta [Concomitant]
  32. ESOMEPRAZOLE MAGNESIUM [Concomitant]
     Active Substance: ESOMEPRAZOLE MAGNESIUM
  33. SYNTHROID [Concomitant]
     Active Substance: LEVOTHYROXINE SODIUM
     Route: 065
  34. VENLAFAXINE [Concomitant]
     Active Substance: VENLAFAXINE HYDROCHLORIDE
  35. SPIRIVA [Concomitant]
     Active Substance: TIOTROPIUM BROMIDE MONOHYDRATE
     Route: 065
  36. BREO ELLIPTA [Concomitant]
     Active Substance: FLUTICASONE FUROATE\VILANTEROL TRIFENATATE
     Route: 055
  37. FLUTICASONE [Concomitant]
     Active Substance: FLUTICASONE
     Route: 055
  38. PROLIA [Concomitant]
     Active Substance: DENOSUMAB
  39. FERROUS SULFATE ANHYDROUS [Concomitant]
     Active Substance: FERROUS SULFATE ANHYDROUS
  40. MONTELUKAST SODIUM [Concomitant]
     Active Substance: MONTELUKAST SODIUM
  41. OXYBUTYNIN CHLORIDE [Concomitant]
     Active Substance: OXYBUTYNIN CHLORIDE
  42. PREVACID [Concomitant]
     Active Substance: LANSOPRAZOLE
  43. RIVASTIGMINE TARTRATE [Concomitant]
     Active Substance: RIVASTIGMINE TARTRATE
  44. VENLAFAXINE HYDROCHLORIDE [Concomitant]
     Active Substance: VENLAFAXINE HYDROCHLORIDE
  45. VITAMIN D3 [Concomitant]
     Active Substance: CHOLECALCIFEROL
  46. FERROUS SULFATE [Concomitant]
     Active Substance: FERROUS SULFATE

REACTIONS (49)
  - Sialoadenitis [Unknown]
  - Pyrexia [Unknown]
  - Pain [Unknown]
  - Nasal congestion [Unknown]
  - Headache [Recovering/Resolving]
  - Ear congestion [Unknown]
  - Cough [Unknown]
  - Vomiting [Recovering/Resolving]
  - Agitation [Unknown]
  - Rhinorrhoea [Unknown]
  - Cough [Unknown]
  - Productive cough [Unknown]
  - Injection site swelling [Recovering/Resolving]
  - Injection site swelling [Recovering/Resolving]
  - Injection site swelling [Unknown]
  - Injection site swelling [Unknown]
  - Arthralgia [Recovering/Resolving]
  - Asthenia [Recovering/Resolving]
  - Depressed mood [Recovering/Resolving]
  - Fall [Recovering/Resolving]
  - Illness [Recovering/Resolving]
  - Increased appetite [Recovering/Resolving]
  - Injection site erythema [Recovering/Resolving]
  - Learning disorder [Recovering/Resolving]
  - Malaise [Recovering/Resolving]
  - Memory impairment [Recovering/Resolving]
  - Infusion site swelling [Unknown]
  - Infusion site swelling [Unknown]
  - Syringe issue [Unknown]
  - Product quality issue [Unknown]
  - Product quality issue [Recovering/Resolving]
  - Incorrect dose administered [Recovering/Resolving]
  - Unintentional medical device removal [Recovering/Resolving]
  - Infusion site swelling [Unknown]
  - Infusion site swelling [Unknown]
  - Infusion site swelling [Unknown]
  - Infusion site swelling [Unknown]
  - Incorrect dose administered [Unknown]
  - Infusion site erythema [Unknown]
  - Infusion site swelling [Unknown]
  - Infusion site swelling [Unknown]
  - Infusion site swelling [Unknown]
  - Diarrhoea [Unknown]
  - Constipation [Unknown]
  - Infusion site swelling [Unknown]
  - Infusion site erythema [Unknown]
  - Infusion site erythema [Unknown]
  - Infusion site swelling [Unknown]
  - Infusion site swelling [Unknown]

NARRATIVE: CASE EVENT DATE: 20241119
